FAERS Safety Report 20794321 (Version 5)
Quarter: 2023Q1

REPORT INFORMATION
  Report Type: Other
  Country: DE (occurrence: None)
  Receive Date: 20220506
  Receipt Date: 20230106
  Transmission Date: 20230417
  Serious: No
  Sender: FDA-Public Use
  Company Number: DE-ROCHE-3010938

PATIENT
  Age: 35 Year
  Sex: Female

DRUGS (11)
  1. OCRELIZUMAB [Suspect]
     Active Substance: OCRELIZUMAB
     Indication: Relapsing-remitting multiple sclerosis
     Route: 042
     Dates: start: 20220104
  2. OCRELIZUMAB [Suspect]
     Active Substance: OCRELIZUMAB
     Route: 042
     Dates: start: 20220705
  3. PREDNISOLONE [Suspect]
     Active Substance: PREDNISOLONE
     Indication: Prophylaxis
     Dosage: ONCE
     Route: 042
     Dates: start: 20220104, end: 20220104
  4. PREDNISOLONE [Suspect]
     Active Substance: PREDNISOLONE
     Indication: Prophylaxis
     Dosage: ONCE
     Route: 042
     Dates: start: 20220120, end: 20220120
  5. PREDNISOLONE [Suspect]
     Active Substance: PREDNISOLONE
     Dosage: ONCE
     Route: 042
     Dates: start: 20220104, end: 20220104
  6. PREDNISOLONE [Suspect]
     Active Substance: PREDNISOLONE
     Dosage: ONCE
     Route: 042
     Dates: start: 20220705, end: 20220705
  7. EBASTINE [Concomitant]
     Active Substance: EBASTINE
     Dosage: IN THE MORNING AND IN THE EVENING FOR 3 DAYS
     Route: 048
     Dates: start: 20220103, end: 20220105
  8. EBASTINE [Concomitant]
     Active Substance: EBASTINE
     Dosage: IN THE MORNING AND IN THE EVENING FOR 3 DAYS
     Route: 048
     Dates: start: 20220119, end: 20220121
  9. EBASTINE [Concomitant]
     Active Substance: EBASTINE
     Route: 048
     Dates: start: 20220704, end: 20220706
  10. CHOLECALCIFEROL [Concomitant]
     Active Substance: CHOLECALCIFEROL
     Indication: Prophylaxis
     Route: 048
     Dates: start: 20180405
  11. ETHINYL ESTRADIOL\LEVONORGESTREL [Concomitant]
     Active Substance: ETHINYL ESTRADIOL\LEVONORGESTREL
     Indication: Prophylaxis
     Dosage: 125/30?MCG
     Route: 048
     Dates: start: 202210

REACTIONS (3)
  - Tachycardia [Recovered/Resolved]
  - COVID-19 [Recovered/Resolved]
  - Upper respiratory tract infection [Unknown]

NARRATIVE: CASE EVENT DATE: 20220106
